FAERS Safety Report 6000921-2 (Version None)
Quarter: 2008Q4

REPORT INFORMATION
  Report Type: 
  Country: None (occurrence: None)
  Receive Date: 20081215
  Receipt Date: 20081210
  Transmission Date: 20090506
  Serious: Yes (Hospitalization)
  Sender: FDA-Public Use
  Company Number: IT-AMGEN-UK319831

PATIENT
  Sex: Male

DRUGS (2)
  1. KEPIVANCE [Suspect]
     Indication: DRUG USE FOR UNKNOWN INDICATION
     Route: 042
     Dates: start: 20081031, end: 20081102
  2. ETOPOSIDE [Concomitant]
     Route: 042

REACTIONS (1)
  - DERMATITIS EXFOLIATIVE [None]
